FAERS Safety Report 12311429 (Version 2)
Quarter: 2016Q2

REPORT INFORMATION
  Report Type: Other
  Country: US (occurrence: CA)
  Receive Date: 20160427
  Receipt Date: 20160510
  Transmission Date: 20160815
  Serious: No
  Sender: FDA-Public Use
  Company Number: US-SHIRE-CA201604714

PATIENT
  Age: 67 Year
  Sex: Male

DRUGS (6)
  1. REVESTIVE [Suspect]
     Active Substance: TEDUGLUTIDE
     Indication: SHORT-BOWEL SYNDROME
     Dosage: 3.61 MG, 1X/DAY:QD
     Route: 058
     Dates: start: 20160216
  2. VITAMIN D                          /00107901/ [Concomitant]
     Active Substance: ERGOCALCIFEROL
     Indication: PRODUCT USED FOR UNKNOWN INDICATION
     Dosage: 10000 IU, 1X/DAY:QD
     Route: 065
  3. PREVACID [Concomitant]
     Active Substance: LANSOPRAZOLE
     Indication: PRODUCT USED FOR UNKNOWN INDICATION
     Dosage: UNK, UNKNOWN
     Route: 065
  4. GASTROLYTE                         /00386201/ [Concomitant]
     Indication: FLUID REPLACEMENT
     Dosage: UNK, UNKNOWN
     Route: 065
     Dates: start: 20160327
  5. TPN [Concomitant]
     Active Substance: AMINO ACIDS\DEXTROSE\ELECTROLYTES NOS\SOYBEAN OIL
     Indication: SHORT-BOWEL SYNDROME
     Dosage: 3000 ML, OVER 10-12 HOURS EVERY 2 NIGHTS
     Route: 042
  6. SODIUM CHLORIDE. [Concomitant]
     Active Substance: SODIUM CHLORIDE
     Indication: SHORT-BOWEL SYNDROME
     Dosage: 1 G, OTHER, WITH FLUIDS
     Route: 048

REACTIONS (7)
  - Frequent bowel movements [Unknown]
  - Sleep disorder [Unknown]
  - Urine output decreased [Unknown]
  - Fatigue [Unknown]
  - Stoma site extravasation [Unknown]
  - Abdominal pain upper [Recovered/Resolved]
  - Constipation [Recovered/Resolved]

NARRATIVE: CASE EVENT DATE: 2016
